FAERS Safety Report 7777128 (Version 3)
Quarter: 2013Q4

REPORT INFORMATION
  Report Type: Spontaneous
  Country: JP (occurrence: JP)
  Receive Date: 20110103
  Receipt Date: 20131109
  Transmission Date: 20140711
  Serious: Yes (Death, Hospitalization, Other)
  Sender: FDA-Public Use
  Company Number: JP-009507513-2010SP066383

PATIENT
  Age: 63 Year
  Sex: Female
  Weight: 54 kg

DRUGS (7)
  1. TEMODAL [Suspect]
     Indication: GLIOBLASTOMA MULTIFORME
     Dosage: 75 MG/M2, QD
     Route: 048
     Dates: start: 20101028, end: 20101211
  2. TEMODAL [Suspect]
     Indication: GLIOBLASTOMA MULTIFORME
  3. BAKTAR [Concomitant]
     Indication: PROPHYLAXIS
     Dosage: DAILY DOSAGE UNKNOWN
     Route: 048
  4. BAKTAR [Concomitant]
     Indication: ANTIFUNGAL PROPHYLAXIS
  5. PREDONINE [Suspect]
     Indication: BRAIN OEDEMA
     Dosage: 10 MG, BID
     Route: 048
     Dates: start: 20101021, end: 20101203
  6. TAKEPRON [Suspect]
     Indication: PROPHYLAXIS AGAINST GASTROINTESTINAL ULCER
     Dosage: 15 MG, ONCE
     Route: 048
     Dates: start: 20101021, end: 20101203
  7. EXCEGRAN [Suspect]
     Indication: CONVULSION PROPHYLAXIS
     Dosage: 100 MG, BID
     Route: 048
     Dates: start: 20101021, end: 20101203

REACTIONS (4)
  - Meningitis cryptococcal [Fatal]
  - Lymphopenia [Fatal]
  - Oral candidiasis [Fatal]
  - Platelet count decreased [Fatal]
